FAERS Safety Report 8507851-2 (Version None)
Quarter: 2012Q3

REPORT INFORMATION
  Report Type: 
  Country: None (occurrence: None)
  Receive Date: 20120713
  Receipt Date: 20120712
  Transmission Date: 20120928
  Serious: Yes (Other)
  Sender: FDA-Public Use
  Company Number: PHFR2012GB000541

PATIENT
  Sex: Female

DRUGS (7)
  1. CLOZARIL [Suspect]
     Indication: SCHIZOPHRENIA
     Dosage: UNK UKN, UNK
     Route: 048
     Dates: start: 20000823
  2. CLOZARIL [Suspect]
     Dosage: 550 MG PER DAY
     Route: 048
  3. CLOZARIL [Suspect]
     Dosage: 825 MG PER DAY
     Route: 048
  4. CLOZARIL [Suspect]
     Dosage: 825 MG
  5. CARBAMAZEPINE [Concomitant]
     Dosage: UNK UKN, UNK
  6. CLOZARIL [Suspect]
     Dosage: 625 MG
  7. CLOZARIL [Suspect]
     Dosage: 200 MG

REACTIONS (5)
  - MALAISE [None]
  - DIZZINESS [None]
  - ANTIPSYCHOTIC DRUG LEVEL INCREASED [None]
  - BALANCE DISORDER [None]
  - INCORRECT DOSE ADMINISTERED [None]
